FAERS Safety Report 8902665 (Version 1)
Quarter: 2012Q4

REPORT INFORMATION
  Report Type: 
  Country: DE (occurrence: DE)
  Receive Date: 20121112
  Receipt Date: 20121112
  Transmission Date: 20130627
  Serious: Yes (Other)
  Sender: FDA-Public Use
  Company Number: DE-PFIZER INC-2012279311

PATIENT
  Age: 73 Year
  Sex: Female

DRUGS (2)
  1. CELEBREX [Suspect]
     Dosage: 200 mg, daily
     Dates: start: 2000, end: 2005
  2. CELEBREX [Suspect]
     Dosage: 100 mg, daily
     Dates: start: 2006, end: 2009

REACTIONS (1)
  - Renal failure [Unknown]
